FAERS Safety Report 5193669-8 (Version None)
Quarter: 2006Q4

REPORT INFORMATION
  Report Type: 
  Country: None (occurrence: None)
  Receive Date: 20061221
  Receipt Date: 20061208
  Transmission Date: 20070319
  Serious: Yes (Disabling)
  Sender: FDA-Public Use
  Company Number: 2006-330

PATIENT
  Age: 29 Year
  Sex: Female

DRUGS (2)
  1. AZITHROMYCIN [Suspect]
     Indication: UTERINE INFLAMMATION
     Dosage: 500MG/2 DAY ORAL
     Route: 048
     Dates: start: 20061005, end: 20061007
  2. DICLOFENIC SODIUM [Concomitant]

REACTIONS (1)
  - HEARING IMPAIRED [None]
